FAERS Safety Report 4857343-7 (Version None)
Quarter: 2005Q4

REPORT INFORMATION
  Report Type: 
  Country: None (occurrence: None)
  Receive Date: 20051219
  Receipt Date: 20050225
  Transmission Date: 20060501
  Serious: No
  Sender: FDA-Public Use
  Company Number: US-GLAXOSMITHKLINE-A0547297A

PATIENT
  Age: 34 Year
  Sex: Male

DRUGS (1)
  1. EQUATE NTS 14MG [Suspect]
     Dates: start: 20050221, end: 20050223

REACTIONS (1)
  - DRUG INEFFECTIVE [None]
